FAERS Safety Report 6140909-4 (Version None)
Quarter: 2009Q2

REPORT INFORMATION
  Report Type: 
  Country: None (occurrence: None)
  Receive Date: 20090402
  Receipt Date: 20080424
  Transmission Date: 20091009
  Serious: No
  Sender: FDA-Public Use
  Company Number: US-KINGPHARMUSA00001-K200800488

PATIENT
  Sex: Female
  Weight: 56.689 kg

DRUGS (3)
  1. SKELAXIN [Suspect]
     Indication: SCIATICA
     Dosage: 400 MG, BID
     Route: 048
     Dates: start: 20080423, end: 20080423
  2. SKELAXIN [Suspect]
     Indication: BACK PAIN
  3. XANAX [Concomitant]
     Dosage: UNK, PRN

REACTIONS (2)
  - PRURITUS [None]
  - RASH [None]
